FAERS Safety Report 7214828-6 (Version None)
Quarter: 2011Q1

REPORT INFORMATION
  Report Type: 
  Country: None (occurrence: None)
  Receive Date: 20110107
  Receipt Date: 20100415
  Transmission Date: 20110831
  Serious: No
  Sender: FDA-Public Use
  Company Number: A0850863A

PATIENT
  Age: 24 Year
  Sex: Male

DRUGS (2)
  1. NO CONCURRENT MEDICATION [Concomitant]
  2. LOVAZA [Suspect]
     Dosage: 1CAP FOUR TIMES PER DAY
     Route: 048
     Dates: start: 20100225, end: 20100311

REACTIONS (2)
  - RASH [None]
  - RASH PAPULAR [None]
